FAERS Safety Report 16303454 (Version 2)
Quarter: 2019Q2

REPORT INFORMATION
  Report Type: Spontaneous
  Country: CH (occurrence: CH)
  Receive Date: 20190513
  Receipt Date: 20190517
  Transmission Date: 20190711
  Serious: Yes (Hospitalization)
  Sender: FDA-Public Use
  Company Number: CH-TEVA-2019-CH-1048702

PATIENT
  Age: 72 Year
  Sex: Male

DRUGS (5)
  1. RITUXIMAB. [Suspect]
     Active Substance: RITUXIMAB
     Indication: CHRONIC MYELOID LEUKAEMIA
     Dosage: 200 MG, CYCLIC (ONCE DAILY) (D1, D2, D3)
     Route: 042
     Dates: start: 20190110, end: 20190112
  2. BENDAMUSTINE HYDROCHLORIDE. [Suspect]
     Active Substance: BENDAMUSTINE HYDROCHLORIDE
     Indication: CHRONIC MYELOID LEUKAEMIA
     Dosage: 120 MG, CYCLIC (DAILY) (D1, D2)
     Route: 042
     Dates: start: 20190110, end: 20190111
  3. RITUXIMAB. [Suspect]
     Active Substance: RITUXIMAB
     Dosage: 800 MG, CYCLIC (ONCE DAILY) (D1)
     Route: 042
     Dates: start: 20190214, end: 20190214
  4. BENDAMUSTINE HYDROCHLORIDE. [Suspect]
     Active Substance: BENDAMUSTINE HYDROCHLORIDE
     Dosage: 150 MG, CYCLIC  (DAILY) (D1 AND D2)
     Route: 042
     Dates: start: 20190214, end: 20190215
  5. IVERMECTIN. [Concomitant]
     Active Substance: IVERMECTIN
     Dosage: 2 DOSES
     Route: 048
     Dates: start: 20190322, end: 20190323

REACTIONS (1)
  - Papuloerythroderma of Ofuji [Not Recovered/Not Resolved]

NARRATIVE: CASE EVENT DATE: 20190228
